FAERS Safety Report 16556758 (Version 1)
Quarter: 2019Q3

REPORT INFORMATION
  Report Type: Spontaneous
  Country: US (occurrence: US)
  Receive Date: 20190529
  Receipt Date: 20190529
  Transmission Date: 20191004
  Serious: No
  Sender: FDA-Public Use
  Company Number: None

PATIENT
  Age: 58 Year
  Sex: Female

DRUGS (1)
  1. CAPECITABINE TAB 500 MG [Suspect]
     Active Substance: CAPECITABINE
     Dosage: 03-JUN-2019

REACTIONS (5)
  - Nephrolithiasis [None]
  - Jaundice [None]
  - Hepatic mass [None]
  - Abscess [None]
  - Septic shock [None]

NARRATIVE: CASE EVENT DATE: 20190529
